FAERS Safety Report 5321055-6 (Version None)
Quarter: 2007Q2

REPORT INFORMATION
  Report Type: 
  Country: None (occurrence: None)
  Receive Date: 20070507
  Receipt Date: 20070507
  Transmission Date: 20071010
  Serious: Yes (Other)
  Sender: FDA-Public Use
  Company Number: None

PATIENT
  Age: 6 Year
  Sex: Male
  Weight: 30.3 kg

DRUGS (4)
  1. CEFOXITIN [Suspect]
     Indication: APPENDICITIS PERFORATED
     Dosage: 1500 MG/100 ML
     Dates: start: 20070428, end: 20070505
  2. CEFOXITIN [Suspect]
  3. HEPARIN [Concomitant]
  4. NS [Concomitant]

REACTIONS (1)
  - RASH PRURITIC [None]
